FAERS Safety Report 12691573 (Version 1)
Quarter: 2016Q3

REPORT INFORMATION
  Report Type: Spontaneous
  Country: US (occurrence: US)
  Receive Date: 20160826
  Receipt Date: 20160826
  Transmission Date: 20161109
  Serious: Yes (Disabling)
  Sender: FDA-Public Use
  Company Number: US-009507513-1608USA008997

PATIENT
  Sex: Female
  Weight: 54.43 kg

DRUGS (1)
  1. VYTORIN [Suspect]
     Active Substance: EZETIMIBE\SIMVASTATIN
     Dosage: 1 DF, QD
     Route: 048
     Dates: end: 2010

REACTIONS (2)
  - Muscle injury [Recovering/Resolving]
  - Gait disturbance [Recovering/Resolving]
